FAERS Safety Report 5746775-0 (Version None)
Quarter: 2008Q2

REPORT INFORMATION
  Report Type: 
  Country: None (occurrence: None)
  Receive Date: 20080522
  Receipt Date: 20080516
  Transmission Date: 20081010
  Serious: Yes (Hospitalization)
  Sender: FDA-Public Use
  Company Number: FR-ELI_LILLY_AND_COMPANY-FR200805003221

PATIENT
  Sex: Female

DRUGS (3)
  1. HUMULIN N [Suspect]
     Indication: TYPE 1 DIABETES MELLITUS
     Dosage: 14 IU, DAILY (1/D)
     Route: 058
  2. AMAREL [Concomitant]
     Indication: TYPE 1 DIABETES MELLITUS
     Dosage: 4 MG, DAILY (1/D)
     Route: 048
     Dates: end: 20080209
  3. GLUCOPHAGE [Concomitant]
     Indication: TYPE 1 DIABETES MELLITUS
     Dosage: 3000 MG, DAILY (1/D)
     Route: 048

REACTIONS (5)
  - DIZZINESS [None]
  - GRAND MAL CONVULSION [None]
  - HUNGER [None]
  - HYPOGLYCAEMIA [None]
  - TREMOR [None]
